FAERS Safety Report 8094629-X (Version None)
Quarter: 2012Q1

REPORT INFORMATION
  Report Type: 
  Country: None (occurrence: None)
  Receive Date: 20120131
  Receipt Date: 20120118
  Transmission Date: 20120608
  Serious: Yes (Death)
  Sender: FDA-Public Use
  Company Number: JP-NOVOPROD-342849

PATIENT
  Age: 74 Year
  Sex: Male
  Weight: 54 kg

DRUGS (4)
  1. VICTOZA [Suspect]
     Indication: TYPE 2 DIABETES MELLITUS
     Dosage: 0.3 MG, QD
     Route: 058
     Dates: start: 20111216, end: 20111217
  2. VICTOZA [Suspect]
     Dosage: 0.6 MG, QD
     Route: 058
     Dates: start: 20111218, end: 20111220
  3. PLAVIX [Concomitant]
     Indication: CORONARY ARTERY STENOSIS
     Route: 048
  4. VICTOZA [Suspect]
     Dosage: 0.9 MG, QD
     Route: 058
     Dates: start: 20111221, end: 20111228

REACTIONS (5)
  - GASTRIC DILATATION [None]
  - CONSTIPATION [None]
  - IMPAIRED GASTRIC EMPTYING [None]
  - MYOCARDIAL INFARCTION [None]
  - DEHYDRATION [None]
